FAERS Safety Report 7276012-X (Version None)
Quarter: 2011Q1

REPORT INFORMATION
  Report Type: 
  Country: None (occurrence: None)
  Receive Date: 20110204
  Receipt Date: 20110126
  Transmission Date: 20110831
  Serious: Yes (Hospitalization)
  Sender: FDA-Public Use
  Company Number: B0696343A

PATIENT
  Sex: Male

DRUGS (4)
  1. KEPPRA [Suspect]
     Route: 065
  2. LAMOTRIGINE [Suspect]
     Indication: EPILEPSY
     Route: 048
     Dates: start: 20100901
  3. RIVOTRIL [Concomitant]
  4. EPANUTIN [Suspect]
     Route: 065

REACTIONS (8)
  - HEMIPLEGIA [None]
  - STARING [None]
  - PSYCHOTIC DISORDER [None]
  - CATATONIA [None]
  - STATUS EPILEPTICUS [None]
  - TRANSMISSION OF AN INFECTIOUS AGENT VIA A MEDICINAL PRODUCT [None]
  - DYSPHAGIA [None]
  - GASTROINTESTINAL TUBE INSERTION [None]
